FAERS Safety Report 4990967-5 (Version None)
Quarter: 2006Q2

REPORT INFORMATION
  Report Type: 
  Country: None (occurrence: None)
  Receive Date: 20060428
  Receipt Date: 20060418
  Transmission Date: 20061013
  Serious: Yes (Disabling)
  Sender: FDA-Public Use
  Company Number: 06H-008-0307540-00

PATIENT
  Age: 13 Year
  Sex: Female

DRUGS (4)
  1. ETOPOSIDE INJECTION (ETOPSIDE) (ETOPOSIDE) [Suspect]
     Indication: EWING'S SARCOMA
     Dosage: 2.5 MG/KG/D, DAYS 1-3, INFUSION
  2. VINCRISTINE [Suspect]
     Indication: EWING'S SARCOMA
     Dosage: 0.05 MG/KG/D, DAYS 1 NAD 14
  3. CYCLOPHOSPHAMIDE [Suspect]
     Indication: EWING'S SARCOMA
     Dosage: 30-55 MG/KG/D, DAYS 1-3
  4. RADIOTHERAPY (THERAPEUTIC RADIOPHARMACEUTICALS) [Concomitant]

REACTIONS (1)
  - OVARIAN FAILURE [None]
